FAERS Safety Report 8556224-5 (Version None)
Quarter: 2012Q3

REPORT INFORMATION
  Report Type: 
  Country: None (occurrence: None)
  Receive Date: 20120801
  Receipt Date: 20120724
  Transmission Date: 20120928
  Serious: Yes (Hospitalization)
  Sender: FDA-Public Use
  Company Number: US-US-EMD SERONO, INC.-7150293

PATIENT
  Sex: Female
  Weight: 100 kg

DRUGS (1)
  1. REBIF [Suspect]
     Indication: PRODUCT USED FOR UNKNOWN INDICATION
     Route: 058
     Dates: start: 20110902

REACTIONS (10)
  - BACK PAIN [None]
  - VERTIGO [None]
  - VISION BLURRED [None]
  - PARAESTHESIA [None]
  - ANXIETY [None]
  - CRYING [None]
  - BURNING SENSATION [None]
  - HEADACHE [None]
  - ANGER [None]
  - INJECTION SITE ERYTHEMA [None]
